FAERS Safety Report 5388752-8 (Version None)
Quarter: 2007Q3

REPORT INFORMATION
  Report Type: 
  Country: None (occurrence: None)
  Receive Date: 20070712
  Receipt Date: 20070705
  Transmission Date: 20080115
  Serious: Yes (Other)
  Sender: FDA-Public Use
  Company Number: 2007BI011649

PATIENT
  Age: 35 Year
  Sex: Female

DRUGS (4)
  1. AVONEX [Suspect]
     Indication: MULTIPLE SCLEROSIS
     Dosage: 30 UG; QW; IM
     Route: 030
     Dates: start: 20040101, end: 20070401
  2. LEVONORGESTREL [Concomitant]
  3. ESTRADIAL [Concomitant]
  4. DULOXETINE [Concomitant]

REACTIONS (1)
  - HODGKIN'S DISEASE [None]
